FAERS Safety Report 4308010-X (Version None)
Quarter: 2004Q1

REPORT INFORMATION
  Report Type: 
  Country: None (occurrence: None)
  Receive Date: 20040301
  Receipt Date: 20030313
  Transmission Date: 20041129
  Serious: No
  Sender: FDA-Public Use
  Company Number: US-BRISTOL-MYERS SQUIBB COMPANY-12210548

PATIENT
  Age: 59 Year
  Sex: Female
  Weight: 78 kg

DRUGS (6)
  1. GLUCOPHAGE [Suspect]
     Indication: DIABETES MELLITUS NON-INSULIN-DEPENDENT
     Dosage: TOOK GLUCOPHAGE EIGHT YEARS AGO
     Route: 048
  2. SYNTHROID [Concomitant]
  3. LIPITOR [Concomitant]
  4. AVAPRO [Concomitant]
  5. PREMPRO (PREMARIN;CYCRIN 14/14) [Concomitant]
  6. CITRACAL [Concomitant]

REACTIONS (4)
  - CARDIAC FLUTTER [None]
  - DIARRHOEA [None]
  - DYSPEPSIA [None]
  - NAUSEA [None]
